FAERS Safety Report 7170043-6 (Version None)
Quarter: 2010Q4

REPORT INFORMATION
  Report Type: 
  Country: None (occurrence: None)
  Receive Date: 20101217
  Receipt Date: 20101208
  Transmission Date: 20110411
  Serious: Yes (Other)
  Sender: FDA-Public Use
  Company Number: FR-JNJFOC-20101205851

PATIENT
  Sex: Female

DRUGS (5)
  1. CONTRAMAL [Suspect]
     Indication: INTERVERTEBRAL DISC PROTRUSION
     Route: 048
  2. ARCOXIA [Suspect]
     Indication: INTERVERTEBRAL DISC PROTRUSION
     Route: 048
  3. EFFEXOR [Interacting]
     Indication: ANXIETY
  4. DOLIPRANE [Concomitant]
  5. LYRICA [Concomitant]
     Route: 065

REACTIONS (2)
  - DRUG INTERACTION [None]
  - HYPERTENSION [None]
